FAERS Safety Report 24606836 (Version 1)
Quarter: 2024Q4

REPORT INFORMATION
  Report Type: Spontaneous
  Country: JP (occurrence: JP)
  Receive Date: 20241112
  Receipt Date: 20241112
  Transmission Date: 20250115
  Serious: Yes (Hospitalization)
  Sender: JOHNSON AND JOHNSON
  Company Number: JP-MTPC-MTPC2024-0023036

PATIENT
  Age: 36 Year
  Sex: Male

DRUGS (4)
  1. CANAGLIFLOZIN [Suspect]
     Active Substance: CANAGLIFLOZIN
     Indication: Type 2 diabetes mellitus
     Dosage: 100 MILLIGRAM, QD
     Route: 048
  2. MOUNJARO [Suspect]
     Active Substance: TIRZEPATIDE
     Indication: Type 2 diabetes mellitus
     Dosage: 2.5 MILLIGRAM, QD
     Route: 058
     Dates: start: 202409
  3. MOUNJARO [Suspect]
     Active Substance: TIRZEPATIDE
     Dosage: 5 MILLIGRAM, QD
     Route: 058
     Dates: start: 20241026, end: 20241102
  4. OZEMPIC [Concomitant]
     Active Substance: SEMAGLUTIDE
     Route: 065

REACTIONS (1)
  - Duodenal ulcer perforation [Not Recovered/Not Resolved]

NARRATIVE: CASE EVENT DATE: 20241104
